FAERS Safety Report 15705304 (Version 1)
Quarter: 2018Q4

REPORT INFORMATION
  Report Type: Spontaneous
  Country: US (occurrence: US)
  Receive Date: 20181210
  Receipt Date: 20181210
  Transmission Date: 20190205
  Serious: Yes (Other)
  Sender: FDA-Public Use
  Company Number: None

PATIENT
  Age: 57 Year
  Sex: Female
  Weight: 94.5 kg

DRUGS (1)
  1. CRESTOR [Suspect]
     Active Substance: ROSUVASTATIN CALCIUM
     Indication: CARDIOVASCULAR DISORDER
     Dosage: ?          QUANTITY:1 TABLET(S);?
     Route: 048
     Dates: start: 20141210, end: 20141211

REACTIONS (6)
  - Musculoskeletal pain [None]
  - Loss of personal independence in daily activities [None]
  - Pain [None]
  - Pain in extremity [None]
  - Suicidal ideation [None]
  - Impaired work ability [None]

NARRATIVE: CASE EVENT DATE: 20141210
